FAERS Safety Report 24539036 (Version 4)
Quarter: 2025Q1

REPORT INFORMATION
  Report Type: Report from Study
  Country: FR (occurrence: FR)
  Receive Date: 20241023
  Receipt Date: 20250130
  Transmission Date: 20250408
  Serious: Yes (Hospitalization, Other)
  Sender: NOVARTIS
  Company Number: FR-002147023-NVSC2024FR206037

PATIENT
  Age: 77 Year
  Sex: Female
  Weight: 80 kg

DRUGS (2)
  1. KISQALI [Suspect]
     Active Substance: RIBOCICLIB
     Indication: Hormone receptor positive HER2 negative breast cancer
     Dosage: 600 MG, QD
     Route: 048
     Dates: start: 20240930
  2. PAMIDRONATE [Concomitant]
     Active Substance: PAMIDRONATE DISODIUM
     Indication: Product used for unknown indication
     Route: 065

REACTIONS (7)
  - Hypercalcaemia [Recovered/Resolved]
  - Hypercalcaemia [Recovered/Resolved]
  - Leukopenia [Recovering/Resolving]
  - Neutropenia [Not Recovered/Not Resolved]
  - Thrombocytopenia [Recovered/Resolved]
  - Electrocardiogram QT prolonged [Recovered/Resolved]
  - Lymphopenia [Recovering/Resolving]

NARRATIVE: CASE EVENT DATE: 20241010
